FAERS Safety Report 18537338 (Version 3)
Quarter: 2025Q2

REPORT INFORMATION
  Report Type: Spontaneous
  Country: GB (occurrence: GB)
  Receive Date: 20201124
  Receipt Date: 20250627
  Transmission Date: 20250717
  Serious: Yes (Other)
  Sender: AUROBINDO
  Company Number: GB-EMA-DD-20201111-FAIZAN_M-101710

PATIENT
  Sex: Female

DRUGS (18)
  1. ABACAVIR [Suspect]
     Active Substance: ABACAVIR
     Indication: HIV infection
     Route: 065
     Dates: start: 1997
  2. ABACAVIR [Suspect]
     Active Substance: ABACAVIR
     Indication: Antiretroviral therapy
  3. EFAVIRENZ [Suspect]
     Active Substance: EFAVIRENZ
     Indication: HIV infection
     Route: 065
     Dates: start: 1997
  4. EFAVIRENZ [Suspect]
     Active Substance: EFAVIRENZ
     Indication: Antiretroviral therapy
  5. LAMIVUDINE [Suspect]
     Active Substance: LAMIVUDINE
     Indication: Antiretroviral therapy
     Route: 065
     Dates: start: 1997
  6. LAMIVUDINE [Suspect]
     Active Substance: LAMIVUDINE
     Indication: HIV infection
  7. TENOFOVIR DISOPROXIL [Suspect]
     Active Substance: TENOFOVIR DISOPROXIL
     Indication: HIV infection
     Route: 065
     Dates: start: 1997
  8. TENOFOVIR DISOPROXIL [Suspect]
     Active Substance: TENOFOVIR DISOPROXIL
     Indication: Antiretroviral therapy
  9. ZIDOVUDINE [Suspect]
     Active Substance: ZIDOVUDINE
     Indication: Antiretroviral therapy
     Route: 065
     Dates: start: 1997
  10. ZIDOVUDINE [Suspect]
     Active Substance: ZIDOVUDINE
     Indication: HIV infection
  11. STAVUDINE [Suspect]
     Active Substance: STAVUDINE
     Indication: Antiretroviral therapy
     Route: 065
     Dates: start: 1997
  12. STAVUDINE [Suspect]
     Active Substance: STAVUDINE
     Indication: HIV infection
  13. NELFINAVIR [Suspect]
     Active Substance: NELFINAVIR
     Indication: Antiretroviral therapy
     Route: 065
     Dates: start: 1997
  14. NELFINAVIR [Suspect]
     Active Substance: NELFINAVIR
     Indication: HIV infection
  15. LOPINAVIR\RITONAVIR [Suspect]
     Active Substance: LOPINAVIR\RITONAVIR
     Indication: Antiretroviral therapy
     Route: 065
     Dates: start: 1997
  16. LOPINAVIR\RITONAVIR [Suspect]
     Active Substance: LOPINAVIR\RITONAVIR
     Indication: HIV infection
  17. DIDANOSINE [Suspect]
     Active Substance: DIDANOSINE
     Indication: Antiretroviral therapy
     Route: 065
     Dates: start: 1997
  18. DIDANOSINE [Suspect]
     Active Substance: DIDANOSINE
     Indication: HIV infection

REACTIONS (10)
  - Lipodystrophy acquired [Not Recovered/Not Resolved]
  - Amenorrhoea [Unknown]
  - Infertility [Unknown]
  - Failure to thrive [Unknown]
  - Depression [Unknown]
  - Treatment noncompliance [Unknown]
  - Delayed puberty [Unknown]
  - Drug resistance [Unknown]
  - Ovarian failure [Not Recovered/Not Resolved]
  - Portal hypertension [Not Recovered/Not Resolved]
